FAERS Safety Report 13599367 (Version 2)
Quarter: 2017Q3

REPORT INFORMATION
  Report Type: Spontaneous
  Country: JP (occurrence: JP)
  Receive Date: 20170531
  Receipt Date: 20170707
  Transmission Date: 20171127
  Serious: Yes (Death, Hospitalization, Other)
  Sender: FDA-Public Use
  Company Number: JP-BRISTOL-MYERS SQUIBB COMPANY-BMS-2016-110394

PATIENT
  Age: 61 Year
  Sex: Male
  Weight: 55 kg

DRUGS (6)
  1. ELIQUIS [Suspect]
     Active Substance: APIXABAN
     Indication: PRODUCT USED FOR UNKNOWN INDICATION
     Dosage: 2.5 MG, QD
     Route: 048
     Dates: start: 20160810, end: 20161118
  2. ELIQUIS [Suspect]
     Active Substance: APIXABAN
     Indication: PRODUCT USED FOR UNKNOWN INDICATION
     Dosage: 2.5 MG, BID
     Route: 065
     Dates: start: 20170309, end: 20170408
  3. VOLTAREN [Suspect]
     Active Substance: DICLOFENAC SODIUM
     Indication: BACK PAIN
     Dosage: UNK
     Route: 048
     Dates: start: 20140702
  4. ELIQUIS [Suspect]
     Active Substance: APIXABAN
     Indication: PRODUCT USED FOR UNKNOWN INDICATION
     Dosage: 2.5 MG, BID
     Route: 048
     Dates: start: 20140821, end: 20160810
  5. ELIQUIS [Suspect]
     Active Substance: APIXABAN
     Indication: PRODUCT USED FOR UNKNOWN INDICATION
     Dosage: 5 MG, BID
     Route: 048
     Dates: start: 20170228, end: 20170309
  6. ELIQUIS [Suspect]
     Active Substance: APIXABAN
     Indication: CEREBROVASCULAR ACCIDENT PROPHYLAXIS
     Dosage: 5 MG, BID
     Route: 048
     Dates: start: 20140306, end: 20140821

REACTIONS (13)
  - Off label use [Unknown]
  - Haemostasis [Unknown]
  - Gastric ulcer haemorrhage [Recovering/Resolving]
  - Spinal fracture [Unknown]
  - Splenic infarction [Unknown]
  - Septic shock [Unknown]
  - Packed red blood cell transfusion [Unknown]
  - Diarrhoea [Unknown]
  - Lip and/or oral cavity cancer [Fatal]
  - Atrial thrombosis [Unknown]
  - Prescribed underdose [Unknown]
  - Anaemia [Unknown]
  - Eating disorder [Unknown]

NARRATIVE: CASE EVENT DATE: 20161113
